FAERS Safety Report 15815326 (Version 1)
Quarter: 2019Q1

REPORT INFORMATION
  Report Type: Spontaneous
  Country: US (occurrence: US)
  Receive Date: 20190112
  Receipt Date: 20190112
  Transmission Date: 20190417
  Serious: Yes (Other)
  Sender: FDA-Public Use
  Company Number: US-BAYER-2019-008011

PATIENT
  Age: 18 Year
  Sex: Male

DRUGS (1)
  1. ACETYLSALICYLIC ACID({=100 MG) [Suspect]
     Active Substance: ASPIRIN
     Indication: CEREBROVASCULAR ACCIDENT PROPHYLAXIS
     Dosage: 81 MG, QD

REACTIONS (6)
  - Product use in unapproved indication [None]
  - Drug ineffective [None]
  - Brain stem ischaemia [Recovering/Resolving]
  - Cerebellar ischaemia [Recovering/Resolving]
  - Embolic cerebral infarction [Recovering/Resolving]
  - Off label use [None]
